FAERS Safety Report 7541494-2 (Version None)
Quarter: 2011Q2

REPORT INFORMATION
  Report Type: 
  Country: None (occurrence: None)
  Receive Date: 20110613
  Receipt Date: 20100217
  Transmission Date: 20111010
  Serious: No
  Sender: FDA-Public Use
  Company Number: 2010BI005583

PATIENT
  Age: 38 Year
  Sex: Female

DRUGS (2)
  1. TYSABRI [Suspect]
     Indication: MULTIPLE SCLEROSIS
     Route: 042
     Dates: start: 20071015, end: 20080114
  2. TYSABRI [Suspect]
     Route: 042
     Dates: start: 20080310

REACTIONS (8)
  - STRESS [None]
  - MEMORY IMPAIRMENT [None]
  - PARAESTHESIA [None]
  - HYPOAESTHESIA [None]
  - PAIN IN EXTREMITY [None]
  - MULTIPLE SCLEROSIS RELAPSE [None]
  - FATIGUE [None]
  - BRADYPHRENIA [None]
